FAERS Safety Report 9233056 (Version 4)
Quarter: 2014Q2

REPORT INFORMATION
  Report Type: Report from Study
  Country: JP (occurrence: JP)
  Receive Date: 20130416
  Receipt Date: 20140422
  Transmission Date: 20141212
  Serious: Yes (Other)
  Sender: FDA-Public Use
  Company Number: PHHY2013JP036311

PATIENT
  Age: 76 Year
  Sex: Male
  Weight: 60 kg

DRUGS (6)
  1. AFINITOR [Suspect]
     Indication: PANCREATIC NEUROENDOCRINE TUMOUR
     Dosage: 5 MG/DAY
     Route: 048
     Dates: start: 20121210, end: 20130104
  2. AFINITOR [Suspect]
     Dosage: 10 MG/DAY
     Route: 048
     Dates: start: 20130105, end: 20130201
  3. AFINITOR [Suspect]
     Dosage: 5 MG/DAY
     Route: 048
     Dates: start: 20130216, end: 20130321
  4. FARMORUBICIN [Suspect]
     Indication: PANCREATIC NEUROENDOCRINE TUMOUR
     Dosage: 30 MG, DAILY
     Dates: start: 20130129
  5. SANDOSTATIN [Concomitant]
     Indication: PANCREATIC NEUROENDOCRINE TUMOUR
     Dosage: 100 UG
     Route: 058
     Dates: start: 20121126, end: 20130128
  6. SANDOSTATIN LAR [Concomitant]
     Indication: PANCREATIC NEUROENDOCRINE TUMOUR
     Dosage: 30 MG
     Route: 030
     Dates: start: 20130128

REACTIONS (23)
  - Thrombocytopenia [Recovered/Resolved]
  - Lymphopenia [Not Recovered/Not Resolved]
  - Blood lactate dehydrogenase increased [Not Recovered/Not Resolved]
  - Alanine aminotransferase increased [Unknown]
  - Stomatitis [Recovered/Resolved]
  - Protein urine [Recovered/Resolved]
  - Hypoglycaemia [Not Recovered/Not Resolved]
  - Malignant neoplasm progression [Not Recovered/Not Resolved]
  - White blood cell count increased [Unknown]
  - High density lipoprotein increased [Unknown]
  - Neutrophil count increased [Unknown]
  - C-reactive protein increased [Unknown]
  - Blood albumin decreased [Unknown]
  - Protein total decreased [Unknown]
  - Blood cholesterol increased [Unknown]
  - Red blood cell count decreased [Unknown]
  - Haemoglobin decreased [Unknown]
  - Haematocrit decreased [Unknown]
  - Blood urea increased [Unknown]
  - Blood creatinine increased [Unknown]
  - Aspartate aminotransferase increased [Unknown]
  - Gamma-glutamyltransferase increased [Unknown]
  - Blood bilirubin increased [Unknown]
